FAERS Safety Report 17255815 (Version 1)
Quarter: 2020Q1

REPORT INFORMATION
  Report Type: Spontaneous
  Country: US (occurrence: US)
  Receive Date: 20200110
  Receipt Date: 20200110
  Transmission Date: 20200409
  Serious: Yes (Life-Threatening, Hospitalization, Other)
  Sender: FDA-Public Use
  Company Number: US-AMGEN-USASP2020003038

PATIENT
  Age: 67 Year
  Sex: Female

DRUGS (3)
  1. AZTREONAM. [Concomitant]
     Active Substance: AZTREONAM
     Indication: STAPHYLOCOCCAL INFECTION
     Dosage: UNK
  2. FILGRASTIM [Suspect]
     Active Substance: FILGRASTIM
     Indication: NEUTROPENIA
     Dosage: 480 MICROGRAM, QD (FOR SIX SEQUENTIAL DAYS)
     Route: 058
  3. DAPTOMYCIN. [Concomitant]
     Active Substance: DAPTOMYCIN
     Indication: STAPHYLOCOCCAL INFECTION
     Dosage: UNK

REACTIONS (4)
  - Acute respiratory distress syndrome [Unknown]
  - Pneumonitis [Unknown]
  - White blood cell count increased [Recovered/Resolved]
  - Off label use [Unknown]
